FAERS Safety Report 10285303 (Version 4)
Quarter: 2015Q3

REPORT INFORMATION
  Report Type: Report from Study
  Country: GB (occurrence: GB)
  Receive Date: 20140708
  Receipt Date: 20150709
  Transmission Date: 20151125
  Serious: Yes (Death, Hospitalization, Other)
  Sender: FDA-Public Use
  Company Number: GB-PFIZER INC-2014186764

PATIENT
  Age: 40 Year
  Sex: Male

DRUGS (26)
  1. IBUPROFEN. [Suspect]
     Active Substance: IBUPROFEN
     Indication: ANALGESIC THERAPY
     Dosage: 1200 MG, UNK
     Route: 048
     Dates: start: 20140109
  2. LIORESAL [Suspect]
     Active Substance: BACLOFEN
     Indication: MUSCLE SPASTICITY
     Dosage: 100 UG, 1X/DAY
     Route: 037
     Dates: start: 20140117, end: 20140119
  3. LIORESAL [Suspect]
     Active Substance: BACLOFEN
     Dosage: 172.03 UG, 1X/DAY
     Route: 037
     Dates: start: 20140122, end: 20140122
  4. LIORESAL [Suspect]
     Active Substance: BACLOFEN
     Dosage: 248.72 UG, 1X/DAY
     Route: 037
     Dates: start: 20140128, end: 20140130
  5. ZOPICLONE [Suspect]
     Active Substance: ZOPICLONE
     Indication: INSOMNIA
     Dosage: 3.75 MG, UNK
     Route: 048
     Dates: start: 20130220
  6. VENLAFAXINE HCL [Suspect]
     Active Substance: VENLAFAXINE HYDROCHLORIDE
     Indication: DEPRESSION
     Dosage: 75 MG, UNK
     Route: 048
     Dates: start: 20140226
  7. LIORESAL [Suspect]
     Active Substance: BACLOFEN
     Dosage: 297.42 UG, 1X/DAY
     Route: 037
     Dates: start: 20140121, end: 20140203
  8. LIORESAL [Suspect]
     Active Substance: BACLOFEN
     Dosage: 274.29 UG, 1X/DAY
     Route: 037
     Dates: start: 20140311
  9. AMLODIPINE BESILATE [Suspect]
     Active Substance: AMLODIPINE BESYLATE
     Indication: HYPERTENSION
     Dosage: 30 MG, UNK
     Route: 048
     Dates: start: 20120705
  10. LIORESAL [Suspect]
     Active Substance: BACLOFEN
     Dosage: 248.72 UG, 1X/DAY
     Route: 037
     Dates: start: 20140204, end: 20140206
  11. LIORESAL [Suspect]
     Active Substance: BACLOFEN
     Dosage: 249.98 UG, 1X/DAY
     Route: 037
     Dates: start: 20140226, end: 20140310
  12. LIORESAL [Suspect]
     Active Substance: BACLOFEN
     Dosage: 207 ?G, 1X DAILY 500 MCG/ML/CONCENTRATION 10 MG/20ML
  13. METOPROLOL TARTRATE. [Suspect]
     Active Substance: METOPROLOL TARTRATE
     Indication: HYPERTENSION
     Dosage: 300 MG, UNK
     Route: 048
     Dates: start: 20120705
  14. MIRTAZAPINE. [Suspect]
     Active Substance: MIRTAZAPINE
     Dosage: UNK
     Dates: start: 20140522
  15. SILDENAFIL CITRATE. [Suspect]
     Active Substance: SILDENAFIL CITRATE
     Indication: ERECTILE DYSFUNCTION
     Dosage: 50 MG, AS NEEDED
     Route: 048
     Dates: start: 20130220
  16. LIORESAL [Suspect]
     Active Substance: BACLOFEN
     Dosage: 143.94 UG, 1X/DAY
     Route: 037
     Dates: start: 20140121, end: 20140121
  17. LIORESAL [Suspect]
     Active Substance: BACLOFEN
     Dosage: 207.44 UG, 1X/DAY
     Route: 037
     Dates: start: 20140207, end: 20140224
  18. LIORESAL [Suspect]
     Active Substance: BACLOFEN
     Dosage: 227.52 UG, 1X/DAY
     Route: 037
     Dates: start: 20140225, end: 20140225
  19. BACLOFEN. [Suspect]
     Active Substance: BACLOFEN
     Dosage: 60 MG, UNK
     Route: 048
     Dates: start: 20120801, end: 20140120
  20. PARACETAMOL [Suspect]
     Active Substance: ACETAMINOPHEN
     Indication: ANALGESIC THERAPY
     Dosage: 1000 MG, AS NEEDED
     Route: 048
     Dates: start: 20121112
  21. RAMIPRIL. [Suspect]
     Active Substance: RAMIPRIL
     Indication: HYPERTENSION
     Dosage: 2.5 MG, UNK
     Route: 048
     Dates: start: 20140113
  22. BACLOFEN. [Suspect]
     Active Substance: BACLOFEN
     Dosage: UNK
     Route: 048
     Dates: start: 20140311
  23. CO-DYDRAMOL [Suspect]
     Active Substance: ACETAMINOPHEN\DIHYDROCODEINE
     Indication: ANALGESIC THERAPY
     Dosage: 2000 MG, UNK
     Route: 048
     Dates: start: 20140109
  24. SERTRALINE HCL [Suspect]
     Active Substance: SERTRALINE HYDROCHLORIDE
     Indication: DEPRESSION
     Dosage: 50 MG, UNK
     Route: 048
     Dates: start: 20121210, end: 20140101
  25. LIORESAL [Suspect]
     Active Substance: BACLOFEN
     Indication: CEREBROVASCULAR ACCIDENT
     Dosage: 120.13 UG, 1X/DAY INCREASE THE BACLOFEN TRITATION BY 20%
     Route: 037
     Dates: start: 20140120, end: 20140120
  26. LIORESAL [Suspect]
     Active Substance: BACLOFEN
     Dosage: 207.44 UG, 1X/DAY
     Route: 037
     Dates: start: 20140123, end: 20140127

REACTIONS (28)
  - Blood ethanol increased [Fatal]
  - Pain in extremity [Unknown]
  - Mental disorder [Recovered/Resolved]
  - Conjunctival hyperaemia [Unknown]
  - Cardiomegaly [Unknown]
  - Hepatic steatosis [Unknown]
  - Stress [Recovered/Resolved]
  - Implant site infection [Recovered/Resolved]
  - Alcohol poisoning [Fatal]
  - Toxicity to various agents [Unknown]
  - Neutrophil count increased [Unknown]
  - Petechiae [Unknown]
  - Pulmonary oedema [Unknown]
  - Scratch [Unknown]
  - Depression [Recovered/Resolved]
  - Implant site extravasation [Recovered/Resolved]
  - Erectile dysfunction [Unknown]
  - Condition aggravated [Unknown]
  - Pulmonary congestion [Unknown]
  - Macrophages increased [Unknown]
  - Purulent discharge [Recovered/Resolved]
  - Self injurious behaviour [Unknown]
  - Wound dehiscence [Recovered/Resolved]
  - Anxiety [Recovered/Resolved]
  - Fall [Unknown]
  - Insomnia [Unknown]
  - Onychomycosis [Unknown]
  - Scar [Unknown]

NARRATIVE: CASE EVENT DATE: 20140223
